FAERS Safety Report 4805752-4 (Version None)
Quarter: 2005Q4

REPORT INFORMATION
  Report Type: 
  Country: None (occurrence: None)
  Receive Date: 20051021
  Receipt Date: 20050804
  Transmission Date: 20060501
  Serious: Yes (Hospitalization)
  Sender: FDA-Public Use
  Company Number: DE-ROCHE-412954

PATIENT
  Age: 58 Year
  Sex: Male
  Weight: 93 kg

DRUGS (8)
  1. PEG-INTERFERON A-2A (RO 25-8310) [Suspect]
     Route: 058
     Dates: start: 20040330, end: 20050107
  2. RIBAVIRIN [Suspect]
     Route: 048
     Dates: start: 20040330, end: 20050107
  3. ANTIDIABETIC DRUG NOS [Concomitant]
     Indication: DIABETES MELLITUS
     Route: 048
     Dates: end: 20050115
  4. DELIX 5 PLUS [Concomitant]
  5. PROPRANOLOL HYDROCHLORIDE [Concomitant]
  6. PANTOZOL [Concomitant]
  7. ALLOPURINOL [Concomitant]
  8. ANTIHYPERTENSIVE DRUG NOS [Concomitant]

REACTIONS (2)
  - DIABETES MELLITUS INADEQUATE CONTROL [None]
  - PANCYTOPENIA [None]
